FAERS Safety Report 9944375 (Version 1)
Quarter: 2014Q1

REPORT INFORMATION
  Report Type: Report from Study
  Country: US (occurrence: US)
  Receive Date: 20140303
  Receipt Date: 20140303
  Transmission Date: 20141002
  Serious: No
  Sender: FDA-Public Use
  Company Number: US-ABBVIE-13P-163-1048551-00

PATIENT
  Age: 44 Year
  Sex: Female

DRUGS (15)
  1. HUMIRA [Suspect]
     Indication: RHEUMATOID ARTHRITIS
  2. LEFLUNOMIDE [Concomitant]
     Indication: RHEUMATOID ARTHRITIS
  3. PERCOCET [Concomitant]
     Indication: PAIN
  4. ADDERALL [Concomitant]
     Indication: ATTENTION DEFICIT/HYPERACTIVITY DISORDER
  5. XANAX [Concomitant]
     Indication: ANXIETY
  6. TOPAMAX [Concomitant]
     Indication: MIGRAINE
  7. IMITREX [Concomitant]
     Indication: MIGRAINE
  8. EFFEXOR [Concomitant]
     Indication: DEPRESSION
  9. ESTROGEN [Concomitant]
     Indication: HORMONE REPLACEMENT THERAPY
     Dosage: DAILY
  10. FLEXERIL [Concomitant]
     Indication: MUSCLE RELAXANT THERAPY
  11. MULTIVITAMINS [Concomitant]
     Indication: PRODUCT USED FOR UNKNOWN INDICATION
     Dosage: DAILY
  12. MACROBID [Concomitant]
     Indication: INFECTION
  13. FOLIC ACID [Concomitant]
     Indication: PRODUCT USED FOR UNKNOWN INDICATION
     Dosage: DAILY
  14. FLONASE [Concomitant]
     Indication: HYPERSENSITIVITY
     Dosage: DAILY
  15. ALLEGRA [Concomitant]
     Indication: HYPERSENSITIVITY
     Dosage: DAILY

REACTIONS (5)
  - Alopecia [Not Recovered/Not Resolved]
  - Rash [Not Recovered/Not Resolved]
  - Urticaria [Not Recovered/Not Resolved]
  - Rash papular [Not Recovered/Not Resolved]
  - Pruritus [Not Recovered/Not Resolved]
